FAERS Safety Report 25432926 (Version 1)
Quarter: 2025Q2

REPORT INFORMATION
  Report Type: Spontaneous
  Country: US (occurrence: None)
  Receive Date: 20250613
  Receipt Date: 20250613
  Transmission Date: 20250716
  Serious: No
  Sender: MDD OPERATIONS
  Company Number: US-MDD US Operations-MDD202405-001658

PATIENT
  Age: 46 Year
  Sex: Male

DRUGS (13)
  1. APOKYN [Suspect]
     Active Substance: APOMORPHINE HYDROCHLORIDE
     Indication: Product used for unknown indication
  2. CARBIDOPA\LEVODOPA [Concomitant]
     Active Substance: CARBIDOPA\LEVODOPA
     Indication: Parkinson^s disease
  3. INBRIJA [Concomitant]
     Active Substance: LEVODOPA
  4. GOCOVRI [Concomitant]
     Active Substance: AMANTADINE
  5. CELECOXIB [Concomitant]
     Active Substance: CELECOXIB
  6. CLONAZEPAM [Concomitant]
     Active Substance: CLONAZEPAM
  7. MIRTAZAPINE [Concomitant]
     Active Substance: MIRTAZAPINE
  8. LIDOCAINE [Concomitant]
     Active Substance: LIDOCAINE
  9. LACTULOSE [Concomitant]
     Active Substance: LACTULOSE
  10. MESALAMINE [Concomitant]
     Active Substance: MESALAMINE
  11. CYCLOBENZAPRINE [Concomitant]
     Active Substance: CYCLOBENZAPRINE
  12. MOTEGRITY [Concomitant]
     Active Substance: PRUCALOPRIDE SUCCINATE
  13. TRULANCE [Concomitant]
     Active Substance: PLECANATIDE

REACTIONS (2)
  - Chest discomfort [Recovering/Resolving]
  - Dyspnoea [Recovering/Resolving]

NARRATIVE: CASE EVENT DATE: 20240506
